FAERS Safety Report 6228380-5 (Version None)
Quarter: 2009Q2

REPORT INFORMATION
  Report Type: 
  Country: None (occurrence: None)
  Receive Date: 20090612
  Receipt Date: 20090604
  Transmission Date: 20091009
  Serious: Yes (Death, Hospitalization)
  Sender: FDA-Public Use
  Company Number: RO-ELI_LILLY_AND_COMPANY-RO200906001423

PATIENT
  Age: 44 Year
  Sex: Male

DRUGS (4)
  1. BYETTA [Suspect]
     Indication: DIABETES MELLITUS
     Dosage: 5 UG, 2/D
     Dates: start: 20090301, end: 20090501
  2. BYETTA [Suspect]
     Dosage: 10 UG, 2/D
     Dates: start: 20090501, end: 20090501
  3. METFORMIN HYDROCHLORIDE [Concomitant]
  4. INDAPAMID [Concomitant]
     Dosage: 2.5 MG, DAILY (1/D)

REACTIONS (4)
  - ANOREXIA [None]
  - CARDIO-RESPIRATORY ARREST [None]
  - GENERAL PHYSICAL HEALTH DETERIORATION [None]
  - HALLUCINATION [None]
